FAERS Safety Report 8355276-5 (Version None)
Quarter: 2012Q2

REPORT INFORMATION
  Report Type: 
  Country: None (occurrence: None)
  Receive Date: 20120511
  Receipt Date: 20120507
  Transmission Date: 20120825
  Serious: Yes (Death, Hospitalization)
  Sender: FDA-Public Use
  Company Number: US-ACTELION-A-US2012-64161

PATIENT

DRUGS (1)
  1. TRACLEER [Suspect]
     Indication: PULMONARY ARTERIAL HYPERTENSION
     Dosage: UNK
     Route: 048
     Dates: start: 20050110

REACTIONS (6)
  - DIALYSIS [None]
  - SURGERY [None]
  - HYPERKALAEMIA [None]
  - DEATH [None]
  - RENAL FAILURE CHRONIC [None]
  - WOUND INFECTION [None]
